FAERS Safety Report 6384942-6 (Version None)
Quarter: 2009Q4

REPORT INFORMATION
  Report Type: 
  Country: None (occurrence: None)
  Receive Date: 20091002
  Receipt Date: 20090828
  Transmission Date: 20100525
  Serious: Yes (Hospitalization)
  Sender: FDA-Public Use
  Company Number: A0804870A

PATIENT
  Age: 79 Year
  Sex: Male

DRUGS (6)
  1. REQUIP XL [Suspect]
     Dosage: 2MG SINGLE DOSE
     Route: 048
     Dates: start: 20090826, end: 20090826
  2. LIPITOR [Concomitant]
  3. ARICEPT [Concomitant]
  4. ASPIRIN [Concomitant]
  5. VITAMINS [Concomitant]
  6. METAMUCIL [Concomitant]

REACTIONS (1)
  - SYNCOPE [None]
